FAERS Safety Report 14578924 (Version 1)
Quarter: 2018Q1

REPORT INFORMATION
  Report Type: Spontaneous
  Country: US (occurrence: US)
  Receive Date: 20180227
  Receipt Date: 20180227
  Transmission Date: 20180509
  Serious: No
  Sender: FDA-Public Use
  Company Number: US-PERRIGO-17US027680

PATIENT
  Age: 66 Year
  Sex: Male
  Weight: 72.56 kg

DRUGS (1)
  1. NAPROXEN SODIUM. [Suspect]
     Active Substance: NAPROXEN SODIUM
     Indication: WRONG DRUG ADMINISTERED
     Dosage: 660 MG, SINGLE
     Route: 048
     Dates: start: 20171019, end: 20171019

REACTIONS (1)
  - Wrong drug administered [Recovered/Resolved]

NARRATIVE: CASE EVENT DATE: 20171019
